FAERS Safety Report 16192990 (Version 1)
Quarter: 2019Q2

REPORT INFORMATION
  Report Type: Spontaneous
  Country: NL (occurrence: NL)
  Receive Date: 20190413
  Receipt Date: 20190413
  Transmission Date: 20190711
  Serious: Yes (Other)
  Sender: FDA-Public Use
  Company Number: NL-ACCORD-120111

PATIENT
  Age: 59 Year
  Sex: Male

DRUGS (1)
  1. INJEXATE [Suspect]
     Active Substance: METHOTREXATE SODIUM
     Indication: RHEUMATOID ARTHRITIS
     Dosage: STRENGTH: 0.5 ML?25MG/WWSP
     Route: 051
     Dates: start: 20181206

REACTIONS (1)
  - Needle issue [Unknown]
